FAERS Safety Report 4356852-7 (Version None)
Quarter: 2004Q2

REPORT INFORMATION
  Report Type: 
  Country: None (occurrence: None)
  Receive Date: 20040507
  Receipt Date: 20040419
  Transmission Date: 20050107
  Serious: Yes (Other)
  Sender: FDA-Public Use
  Company Number: USA040465347

PATIENT
  Age: 64 Year
  Sex: Female

DRUGS (2)
  1. EVISTA [Suspect]
     Dates: start: 20030101
  2. FORTEO [Suspect]
     Indication: OSTEOPOROSIS
     Dates: start: 20040415

REACTIONS (3)
  - COMPRESSION FRACTURE [None]
  - DIZZINESS [None]
  - PHARMACEUTICAL PRODUCT COMPLAINT [None]
